FAERS Safety Report 5191040-6 (Version None)
Quarter: 2006Q4

REPORT INFORMATION
  Report Type: 
  Country: None (occurrence: None)
  Receive Date: 20061226
  Receipt Date: 20060714
  Transmission Date: 20070319
  Serious: Yes (Other)
  Sender: FDA-Public Use
  Company Number: 2006UW14687

PATIENT
  Age: 56 Year
  Sex: Female

DRUGS (7)
  1. CRESTOR [Suspect]
     Indication: BLOOD CHOLESTEROL INCREASED
     Route: 048
     Dates: start: 20050101, end: 20050101
  2. EFFEXOR XR [Concomitant]
     Dosage: 37.5 + 75 MG
  3. IMOVANE [Concomitant]
  4. MARINOL [Concomitant]
  5. METFORMIN HCL [Concomitant]
  6. MORPHINE SULPHATE SR [Concomitant]
  7. PROPRANOLOL [Concomitant]

REACTIONS (2)
  - CHOLELITHIASIS [None]
  - GALLBLADDER DISORDER [None]
